FAERS Safety Report 8514191-4 (Version None)
Quarter: 2012Q3

REPORT INFORMATION
  Report Type: 
  Country: None (occurrence: None)
  Receive Date: 20120717
  Receipt Date: 20120712
  Transmission Date: 20120928
  Serious: Yes (Other)
  Sender: FDA-Public Use
  Company Number: US-PFIZER INC-2012168221

PATIENT

DRUGS (1)
  1. DILANTIN [Suspect]
     Dosage: 200 MG, 2X/DAY (100 MG, 2 CAPSULES TWICE A DAY)
     Route: 048

REACTIONS (2)
  - IMPAIRED WORK ABILITY [None]
  - ROAD TRAFFIC ACCIDENT [None]
